FAERS Safety Report 4874472-2 (Version None)
Quarter: 2006Q1

REPORT INFORMATION
  Report Type: 
  Country: None (occurrence: None)
  Receive Date: 20060106
  Receipt Date: 20051221
  Transmission Date: 20060701
  Serious: Yes (Hospitalization)
  Sender: FDA-Public Use
  Company Number: US-ROCHE-429953

PATIENT
  Age: 43 Year
  Sex: Female
  Weight: 123.4 kg

DRUGS (13)
  1. PEGASYS [Suspect]
     Route: 058
     Dates: start: 20051023, end: 20051115
  2. COPEGUS [Suspect]
     Route: 048
     Dates: start: 20051023, end: 20051115
  3. LEVOXYL [Concomitant]
     Indication: THYROID DISORDER
     Route: 048
  4. CELEXA [Concomitant]
     Indication: DEPRESSION
     Dosage: THE PATIENT HAS BEEN RECEIVING CITALOPRAM FOR FIVE YEARS.
     Route: 048
     Dates: start: 20000615
  5. SINGULAIR [Concomitant]
     Indication: ASTHMA
     Route: 055
  6. UNSPECIFIED MEDICATION [Concomitant]
     Indication: MIGRAINE
     Route: 048
  7. XANAX [Concomitant]
     Indication: DRUG USE FOR UNKNOWN INDICATION
     Route: 048
  8. AMBIEN [Concomitant]
     Indication: SOMNOLENCE
     Route: 048
  9. PREVACID [Concomitant]
     Indication: DRUG USE FOR UNKNOWN INDICATION
     Route: 048
  10. DETROL [Concomitant]
     Indication: DRUG USE FOR UNKNOWN INDICATION
  11. NADOLOL [Concomitant]
  12. PROVERA [Concomitant]
     Indication: DRUG USE FOR UNKNOWN INDICATION
  13. OXYCONTIN [Concomitant]
     Indication: BACK PAIN

REACTIONS (6)
  - CELLULITIS [None]
  - CHOLELITHIASIS [None]
  - DEHYDRATION [None]
  - FALL [None]
  - PNEUMONIA [None]
  - VOMITING [None]
